FAERS Safety Report 8080961-2 (Version None)
Quarter: 2012Q1

REPORT INFORMATION
  Report Type: 
  Country: None (occurrence: None)
  Receive Date: 20120130
  Receipt Date: 20120126
  Transmission Date: 20120608
  Serious: Yes (Other)
  Sender: FDA-Public Use
  Company Number: US-MERCK-1201USA03708

PATIENT
  Age: 96 Year
  Sex: Female

DRUGS (2)
  1. FOSAMAX [Suspect]
     Route: 048
     Dates: start: 19990101, end: 20080201
  2. FOSAMAX [Suspect]
     Route: 048
     Dates: start: 20080301, end: 20110301

REACTIONS (2)
  - LOW TURNOVER OSTEOPATHY [None]
  - FEMUR FRACTURE [None]
